FAERS Safety Report 7406972-5 (Version None)
Quarter: 2011Q2

REPORT INFORMATION
  Report Type: 
  Country: None (occurrence: None)
  Receive Date: 20110411
  Receipt Date: 20101227
  Transmission Date: 20111010
  Serious: Yes (Hospitalization)
  Sender: FDA-Public Use
  Company Number: US-BAYER-201025760NA

PATIENT
  Age: 30 Year
  Sex: Female
  Weight: 66.667 kg

DRUGS (23)
  1. ACETAMINOPHEN [Concomitant]
  2. NEURONTIN [Concomitant]
     Dosage: 300 MG, AT BED TIME
     Route: 048
  3. ROBAXIN [Concomitant]
     Indication: ARTHRALGIA
     Dosage: 500 MG, UNK
  4. NORCO [Concomitant]
     Indication: RADICULOPATHY
  5. YAZ [Suspect]
  6. YASMIN [Suspect]
     Indication: ACNE
     Route: 048
  7. OCELLA [Suspect]
     Indication: ACNE
     Route: 048
  8. NORCO [Concomitant]
     Indication: PAIN MANAGEMENT
  9. DEMEROL [Concomitant]
     Indication: ABDOMINAL PAIN UPPER
  10. HYDROCODONE BITARTRATE AND ACETAMINOPHEN [Concomitant]
     Dosage: 10-325 AS NEEDED
     Route: 048
  11. CELEBREX [Concomitant]
     Dosage: UNK
     Dates: start: 20061001
  12. VALIUM [Concomitant]
  13. CYCLOBENZAPRINE [Concomitant]
     Dosage: 10 MG, TID
     Route: 048
  14. ROZEREM [Concomitant]
     Indication: SLEEP DISORDER
     Dosage: 8 MG, AT BEDTIME
     Route: 048
  15. KETOROLAC [Concomitant]
  16. NAPROXEN [Concomitant]
     Dosage: UNK
     Dates: start: 20070601
  17. LYRICA [Concomitant]
     Indication: RADICULOPATHY
     Dosage: 75 MG, UNK
  18. YAZ [Suspect]
     Indication: PREMENSTRUAL SYNDROME
     Dosage: UNK
     Route: 048
     Dates: start: 20061222
  19. YAZ [Suspect]
     Indication: CONTRACEPTION
  20. VALIUM [Concomitant]
     Indication: PREMENSTRUAL SYNDROME
  21. FLEXERIL [Concomitant]
     Indication: RADICULOPATHY
  22. MOBIC [Concomitant]
     Indication: PRODUCT USED FOR UNKNOWN INDICATION
  23. ANAPROX [Concomitant]
     Dosage: UNK
     Dates: start: 20070201

REACTIONS (9)
  - ABDOMINAL DISCOMFORT [None]
  - DIARRHOEA [None]
  - CHOLELITHIASIS [None]
  - ABDOMINAL PAIN UPPER [None]
  - HIATUS HERNIA [None]
  - NAUSEA [None]
  - GASTRITIS [None]
  - VOMITING [None]
  - CHOLECYSTITIS CHRONIC [None]
